FAERS Safety Report 5025281-5 (Version None)
Quarter: 2006Q2

REPORT INFORMATION
  Report Type: 
  Country: None (occurrence: None)
  Receive Date: 20060426
  Receipt Date: 20060209
  Transmission Date: 20061013
  Serious: Yes (Other)
  Sender: FDA-Public Use
  Company Number: 2005163351

PATIENT
  Age: 54 Year
  Sex: Male
  Weight: 79.8331 kg

DRUGS (2)
  1. LYRICA [Suspect]
     Indication: NEUROPATHY PERIPHERAL
     Dosage: 150 MG (75 MG, 2 IN 1 D), UNKNOWN
     Dates: start: 20050101, end: 20050101
  2. LOTREL [Concomitant]

REACTIONS (1)
  - PRURITUS [None]
